FAERS Safety Report 7012065-1 (Version None)
Quarter: 2010Q3

REPORT INFORMATION
  Report Type: 
  Country: None (occurrence: None)
  Receive Date: 20100924
  Receipt Date: 20100910
  Transmission Date: 20110219
  Serious: Yes (Death, Hospitalization)
  Sender: FDA-Public Use
  Company Number: DE-JNJFOC-20081005934

PATIENT
  Age: 81 Year
  Sex: Female

DRUGS (1)
  1. DOXORUBICIN HCL [Suspect]
     Indication: BREAST CANCER METASTATIC
     Dosage: CYCLE 1 - SINGLE DOSE RECEIVED
     Route: 042

REACTIONS (2)
  - BREAST CANCER METASTATIC [None]
  - GENERAL PHYSICAL HEALTH DETERIORATION [None]
